FAERS Safety Report 20977120 (Version 1)
Quarter: 2022Q2

REPORT INFORMATION
  Report Type: Spontaneous
  Country: LT (occurrence: LT)
  Receive Date: 20220617
  Receipt Date: 20220617
  Transmission Date: 20220721
  Serious: Yes (Hospitalization)
  Sender: FDA-Public Use
  Company Number: LT-KRKA-LT2022K07072LIT

PATIENT
  Age: 61 Year
  Sex: Female

DRUGS (24)
  1. DIAZEPAM [Suspect]
     Active Substance: DIAZEPAM
     Indication: Anxiety
     Dosage: 10 MG, PER DAY
     Route: 065
  2. BROMAZEPAM [Suspect]
     Active Substance: BROMAZEPAM
     Indication: Anxiety
     Dosage: 6 MG, PER DAY
     Route: 065
  3. BROMAZEPAM [Suspect]
     Active Substance: BROMAZEPAM
     Indication: Sleep disorder
  4. BROMAZEPAM [Suspect]
     Active Substance: BROMAZEPAM
     Indication: Agitation
  5. BENSERAZIDE [Suspect]
     Active Substance: BENSERAZIDE
     Indication: Product used for unknown indication
     Dosage: 25 MG, 5 X PER DAY
     Route: 048
  6. BENSERAZIDE [Suspect]
     Active Substance: BENSERAZIDE
     Dosage: 25 MG, 4X PER DAY
     Route: 065
  7. ROPINIROLE [Suspect]
     Active Substance: ROPINIROLE
     Indication: Parkinson^s disease
     Dosage: 8 MG, PER DAY
     Route: 065
  8. ROPINIROLE [Suspect]
     Active Substance: ROPINIROLE
     Dosage: 8 MG, PER DAY
     Route: 065
  9. ROPINIROLE [Suspect]
     Active Substance: ROPINIROLE
     Dosage: 20 MG, PER DAY
     Route: 065
  10. ROPINIROLE [Suspect]
     Active Substance: ROPINIROLE
     Dosage: 12 MG, PER DAY
     Route: 065
  11. CLOZAPINE [Suspect]
     Active Substance: CLOZAPINE
     Indication: Behaviour disorder
     Dosage: 150 MG, PER DAY
     Route: 065
  12. CLOZAPINE [Suspect]
     Active Substance: CLOZAPINE
     Indication: Hallucination, visual
     Dosage: 25 MG, PER DAY
     Route: 065
  13. LEVODOPA [Suspect]
     Active Substance: LEVODOPA
     Indication: Parkinson^s disease
     Dosage: 100 MG
     Route: 065
  14. SERTRALINE HYDROCHLORIDE [Suspect]
     Active Substance: SERTRALINE HYDROCHLORIDE
     Indication: Depression
     Dosage: 125 MG IN THE MORNING
     Route: 065
  15. SERTRALINE HYDROCHLORIDE [Suspect]
     Active Substance: SERTRALINE HYDROCHLORIDE
     Indication: Anxiety
     Dosage: 150 MG, PER DAY
     Route: 065
  16. QUETIAPINE [Suspect]
     Active Substance: QUETIAPINE
     Indication: Depression
     Dosage: 450 MG, PER DAY
     Route: 065
  17. OLANZAPINE [Suspect]
     Active Substance: OLANZAPINE
     Dosage: 25 MG AT NIGHT
     Route: 065
  18. OLANZAPINE [Suspect]
     Active Substance: OLANZAPINE
     Indication: Product used for unknown indication
     Dosage: 2.5 MG, PER DAY
     Route: 065
  19. OLANZAPINE [Suspect]
     Active Substance: OLANZAPINE
     Dosage: 10 MG, PER DAY
     Route: 065
  20. OLANZAPINE [Suspect]
     Active Substance: OLANZAPINE
     Dosage: 15 MG, PER DAY
     Route: 065
  21. TRIHEXYPHENIDYL [Suspect]
     Active Substance: TRIHEXYPHENIDYL
     Indication: Product used for unknown indication
     Dosage: 4 MG, PER DAY
     Route: 065
  22. MIRTAZAPINE [Suspect]
     Active Substance: MIRTAZAPINE
     Indication: Anxiety
     Dosage: 30 MG, PER DAY
     Route: 065
  23. MIRTAZAPINE [Suspect]
     Active Substance: MIRTAZAPINE
     Indication: Agitation
     Dosage: 15 MG, PER DAY
     Route: 065
  24. MIRTAZAPINE [Suspect]
     Active Substance: MIRTAZAPINE
     Indication: Sleep disorder
     Dosage: 30 MG, PER DAY
     Route: 065

REACTIONS (7)
  - Condition aggravated [Recovering/Resolving]
  - Neutropenia [Unknown]
  - Drug ineffective [Recovering/Resolving]
  - Intentional product misuse [Unknown]
  - Muscle spasms [Unknown]
  - Movement disorder [Unknown]
  - Speech disorder [Unknown]
